FAERS Safety Report 9988761 (Version 1)
Quarter: 2014Q1

REPORT INFORMATION
  Report Type: Spontaneous
  Country: FR (occurrence: FR)
  Receive Date: 20140310
  Receipt Date: 20140310
  Transmission Date: 20141002
  Serious: Yes (Hospitalization)
  Sender: FDA-Public Use
  Company Number: FR-ACCORD-022370

PATIENT
  Age: 60 Year
  Sex: Male

DRUGS (11)
  1. DOCETAXEL [Suspect]
     Indication: LUNG ADENOCARCINOMA
     Route: 042
     Dates: start: 20140121
  2. MONOZECLAR [Suspect]
     Indication: PRODUCT USED FOR UNKNOWN INDICATION
     Dates: start: 20140129
  3. EUPHON [Concomitant]
     Dates: start: 20140129
  4. POLARAMINE [Concomitant]
     Dosage: FOR A FEW DAYS
  5. THIOVALONE [Concomitant]
     Dosage: THROAT SPRAY
     Dates: start: 20140129
  6. ARESTAL [Concomitant]
     Dates: start: 20140129
  7. METHYLPREDNISOLONE [Concomitant]
     Dosage: FROM DAY 1 TO DAY 4
  8. TOPALGIC [Concomitant]
     Dosage: LONG TERM TREATMENT
     Route: 048
  9. ZOPHREN [Concomitant]
     Dosage: FROM DAY 1 TO DAY 6
     Route: 042
     Dates: start: 20140121
  10. INNOHEP [Concomitant]
     Dosage: LONG TERM TREATMENT
     Route: 058
     Dates: end: 20140204
  11. CETIRIZINE [Concomitant]
     Dosage: FOR A FEW DAYS

REACTIONS (2)
  - Cholestasis [Unknown]
  - Colitis [Recovering/Resolving]
